FAERS Safety Report 19804313 (Version 1)
Quarter: 2021Q3

REPORT INFORMATION
  Report Type: Spontaneous
  Country: US (occurrence: US)
  Receive Date: 20210908
  Receipt Date: 20210908
  Transmission Date: 20211014
  Serious: No
  Sender: FDA-Public Use
  Company Number: US-FARMAPROD-202105-0700

PATIENT
  Age: 79 Year
  Sex: Female

DRUGS (6)
  1. OXERVATE [Suspect]
     Active Substance: CENEGERMIN-BKBJ
     Indication: KERATITIS
  2. CALCIUM + VITAMIN D [Concomitant]
     Active Substance: CALCIUM\VITAMIN D
     Dosage: 500 MG?1000 UI
  3. ESTRADIOL. [Concomitant]
     Active Substance: ESTRADIOL
  4. OXERVATE [Suspect]
     Active Substance: CENEGERMIN-BKBJ
     Indication: CORNEAL EROSION
     Route: 047
     Dates: start: 20210422
  5. ADVANCED RELIEF [Concomitant]
     Active Substance: DEXTRAN 70\POLYETHYLENE GLYCOL 400\POVIDONE\TETRAHYDROZOLINE HYDROCHLORIDE
     Route: 047
  6. LORATADINE?D [Concomitant]
     Dosage: 10MG?240MG

REACTIONS (6)
  - Product storage error [Unknown]
  - Photopsia [Recovered/Resolved]
  - Product dose omission issue [Recovering/Resolving]
  - Wrong technique in product usage process [Unknown]
  - Periorbital pain [Unknown]
  - Eye pain [Unknown]

NARRATIVE: CASE EVENT DATE: 20210509
